FAERS Safety Report 10645136 (Version 1)
Quarter: 2014Q4

REPORT INFORMATION
  Report Type: Report from Study
  Country: US (occurrence: US)
  Receive Date: 20141211
  Receipt Date: 20141211
  Transmission Date: 20150529
  Serious: Yes (Hospitalization)
  Sender: FDA-Public Use
  Company Number: US-BIOGENIDEC-2014BI130188

PATIENT
  Age: 69 Year
  Sex: Female

DRUGS (1)
  1. AVONEX [Suspect]
     Active Substance: INTERFERON BETA-1A
     Indication: MULTIPLE SCLEROSIS
     Route: 030
     Dates: start: 1999

REACTIONS (9)
  - Uterine leiomyoma [Unknown]
  - Restless legs syndrome [Unknown]
  - Glaucoma [Unknown]
  - Fall [Recovered/Resolved]
  - Influenza like illness [Unknown]
  - Coccydynia [Unknown]
  - Rib fracture [Unknown]
  - Pain in extremity [Unknown]
  - Headache [Unknown]

NARRATIVE: CASE EVENT DATE: 20140806
